FAERS Safety Report 19324939 (Version 1)
Quarter: 2021Q2

REPORT INFORMATION
  Report Type: Spontaneous
  Country: FR (occurrence: FR)
  Receive Date: 20210528
  Receipt Date: 20210528
  Transmission Date: 20210717
  Serious: Yes (Hospitalization)
  Sender: FDA-Public Use
  Company Number: FR-TEVA-2021-FR-1915503

PATIENT
  Age: 69 Year
  Sex: Female

DRUGS (1)
  1. NITROFURANTOINE [Suspect]
     Active Substance: NITROFURANTOIN
     Indication: CYSTITIS
     Dosage: INTERMITTENT INTAKE UP TO 4?5 / YEAR; TAKEN ABOUT 3 TO 7 DAYS FOR ABOUT 2 YEARS
     Route: 048
     Dates: start: 2018, end: 2020

REACTIONS (2)
  - Pulmonary alveolar haemorrhage [Recovering/Resolving]
  - Interstitial lung disease [Recovering/Resolving]

NARRATIVE: CASE EVENT DATE: 20210504
